FAERS Safety Report 10734155 (Version 2)
Quarter: 2015Q1

REPORT INFORMATION
  Report Type: Report from Study
  Country: GB (occurrence: GB)
  Receive Date: 20150123
  Receipt Date: 20150323
  Transmission Date: 20150721
  Serious: Yes (Death, Hospitalization)
  Sender: FDA-Public Use
  Company Number: GB-JNJFOC-20150113763

PATIENT
  Age: 65 Year
  Sex: Male
  Weight: 73 kg

DRUGS (3)
  1. PRAVASTATIN [Concomitant]
     Active Substance: PRAVASTATIN\PRAVASTATIN SODIUM
     Indication: HYPERLIPIDAEMIA
     Dosage: START DATE- LONG TERM
     Route: 048
  2. ASPIRIN. [Concomitant]
     Active Substance: ASPIRIN
     Indication: CEREBROVASCULAR ACCIDENT PROPHYLAXIS
     Dosage: START DATE-LONG TERM
     Route: 048
     Dates: end: 20140928
  3. IBRUTINIB [Suspect]
     Active Substance: IBRUTINIB
     Indication: MANTLE CELL LYMPHOMA
     Dosage: 140 MG CAPSULE
     Route: 048
     Dates: start: 20140822, end: 20140928

REACTIONS (3)
  - Myelodysplastic syndrome [Fatal]
  - Acute myeloid leukaemia [Fatal]
  - Neutropenic sepsis [Fatal]

NARRATIVE: CASE EVENT DATE: 20140928
